FAERS Safety Report 8507755-5 (Version None)
Quarter: 2012Q3

REPORT INFORMATION
  Report Type: 
  Country: None (occurrence: None)
  Receive Date: 20120709
  Receipt Date: 20120709
  Transmission Date: 20120928
  Serious: Yes (Other)
  Sender: FDA-Public Use
  Company Number: None

PATIENT
  Age: 55 Year
  Sex: Female
  Weight: 61.2356 kg

DRUGS (1)
  1. BOTOX [Suspect]
     Indication: SKIN WRINKLING
     Dates: start: 20120608

REACTIONS (22)
  - MALAISE [None]
  - INDIFFERENCE [None]
  - WHEEZING [None]
  - COUGH [None]
  - DEPRESSION [None]
  - FATIGUE [None]
  - THROAT TIGHTNESS [None]
  - FEAR [None]
  - DISORIENTATION [None]
  - DIZZINESS [None]
  - PANIC ATTACK [None]
  - DYSPHONIA [None]
  - VISUAL ACUITY REDUCED [None]
  - SPEECH DISORDER [None]
  - THINKING ABNORMAL [None]
  - PARAESTHESIA [None]
  - MIGRAINE [None]
  - PALPITATIONS [None]
  - EYELID PTOSIS [None]
  - VISION BLURRED [None]
  - DYSGEUSIA [None]
  - DYSPNOEA [None]
